FAERS Safety Report 9348696 (Version 1)
Quarter: 2013Q2

REPORT INFORMATION
  Report Type: Spontaneous
  Country: AU (occurrence: AU)
  Receive Date: 20130614
  Receipt Date: 20130614
  Transmission Date: 20140414
  Serious: Yes (Hospitalization)
  Sender: FDA-Public Use
  Company Number: AU-SANOFI-AVENTIS-200417067GDDC

PATIENT
  Age: 43 Year
  Sex: Female
  Weight: 55 kg

DRUGS (14)
  1. LEFLUNOMIDE [Suspect]
     Indication: RHEUMATOID ARTHRITIS
     Dosage: DOSE AS USED: UNK
     Route: 048
  2. METHOTREXATE [Interacting]
     Indication: RHEUMATOID ARTHRITIS
     Dates: end: 20020703
  3. ESTROGEN NOS [Concomitant]
     Dosage: DOSE AS USED: LOW DOSE
  4. SALBUTAMOL [Concomitant]
     Dosage: DOSE AS USED: UNK
  5. BUDESONIDE [Concomitant]
     Dosage: DOSE AS USED: UNK
  6. FOLIC ACID [Concomitant]
  7. FLUVOXAMINE MALEATE [Concomitant]
  8. FERROUS SULFATE [Concomitant]
  9. DICLOFENAC SODIUM [Concomitant]
  10. PERICIAZINE [Concomitant]
     Dosage: DOSE AS USED: UNK
  11. OMEPRAZOLE [Concomitant]
  12. RISEDRONATE SODIUM [Concomitant]
  13. TRISEQUENS [Concomitant]
     Dosage: DOSE AS USED: UNK
  14. CALCIUM [Concomitant]
     Dosage: DOSE AS USED: UNK

REACTIONS (12)
  - Malaise [Recovered/Resolved]
  - Pancytopenia [Recovered/Resolved]
  - White blood cell count decreased [Recovered/Resolved]
  - Neutrophil count decreased [Recovered/Resolved]
  - Platelet count decreased [Recovered/Resolved]
  - Drug interaction [Unknown]
  - Pneumonia [Recovered/Resolved]
  - Hepatic function abnormal [Recovered/Resolved]
  - Gamma-glutamyltransferase decreased [Recovered/Resolved]
  - Alanine aminotransferase increased [Recovered/Resolved]
  - Bronchitis [Recovered/Resolved]
  - Renal impairment [Recovered/Resolved]
